FAERS Safety Report 23340661 (Version 1)
Quarter: 2023Q4

REPORT INFORMATION
  Report Type: Spontaneous
  Country: SE (occurrence: SE)
  Receive Date: 20231227
  Receipt Date: 20231227
  Transmission Date: 20240110
  Serious: Yes (Life-Threatening, Hospitalization, Other)
  Sender: FDA-Public Use
  Company Number: None

PATIENT
  Age: 32 Year
  Sex: Female
  Weight: 85 kg

DRUGS (19)
  1. OLANZAPINE [Interacting]
     Active Substance: OLANZAPINE
     Indication: Suicidal ideation
     Dosage: UNK,  UNK (SUBSEQUENT GRADUAL INCREASE)
     Route: 065
  2. OLANZAPINE [Interacting]
     Active Substance: OLANZAPINE
     Indication: Anxiety
     Dosage: 5 MG, ONCE PER DAY
     Route: 065
  3. OLANZAPINE [Interacting]
     Active Substance: OLANZAPINE
     Dosage: 5 MG, 2 TIMES PER DAY (DURING THE FOLLOWING 2 WEEKS)
     Route: 065
  4. OLANZAPINE [Interacting]
     Active Substance: OLANZAPINE
     Dosage: 7.5 MG, ONCE PER DAY
     Route: 065
  5. OLANZAPINE [Interacting]
     Active Substance: OLANZAPINE
     Dosage: 2.5 MG, 2 TIMES PER DAY
     Route: 065
  6. VENLAFAXINE [Interacting]
     Active Substance: VENLAFAXINE HYDROCHLORIDE
     Indication: Depression
     Dosage: 187.5 MG, ONCE PER DAY
     Route: 065
  7. VENLAFAXINE [Interacting]
     Active Substance: VENLAFAXINE HYDROCHLORIDE
     Dosage: 225 MG, ONCE PER DAY (NCREASE)
  8. VENLAFAXINE [Interacting]
     Active Substance: VENLAFAXINE HYDROCHLORIDE
     Dosage: 225 MG, ONCE PER DAY
  9. VENLAFAXINE [Interacting]
     Active Substance: VENLAFAXINE HYDROCHLORIDE
     Dosage: UNK, UNK  (TAPERING)
  10. ONDANSETRON [Concomitant]
     Active Substance: ONDANSETRON
     Indication: Nausea
     Dosage: 4 MG, AS NECESSARY
     Route: 065
  11. ZOLPIDEM [Concomitant]
     Active Substance: ZOLPIDEM TARTRATE
     Indication: Sleep disorder
     Dosage: 10 MG, ONCE PER DAY (NIGHTLY REGIMEN)
     Route: 065
  12. PROMETHAZINE [Concomitant]
     Active Substance: PROMETHAZINE HYDROCHLORIDE
     Indication: Anxiety
     Dosage: 25 MG, AS NECESSARY
     Route: 065
  13. OXAZEPAM [Concomitant]
     Active Substance: OXAZEPAM
     Indication: Anxiety
     Dosage: 10 MG, AS NECESSARY
     Route: 065
  14. LAMOTRIGINE [Concomitant]
     Active Substance: LAMOTRIGINE
     Indication: Depression
     Dosage: 50 MG, ONCE PER DAY (GRADUAL INCREASE OVER 2 WEEKS)
     Route: 065
  15. LAMOTRIGINE [Concomitant]
     Active Substance: LAMOTRIGINE
     Dosage: 150 MG, ONCE PER DAY (GRADUAL INCREASE OVER 2 WEEKS)
     Route: 065
  16. LAMOTRIGINE [Concomitant]
     Active Substance: LAMOTRIGINE
     Dosage: 25 MG, ONCE PER DAY
     Route: 065
  17. LAMOTRIGINE [Concomitant]
     Active Substance: LAMOTRIGINE
     Dosage: UNK,  UNK (TAPERING)
     Route: 065
  18. LAMOTRIGINE [Concomitant]
     Active Substance: LAMOTRIGINE
     Dosage: UNK UNK, ONCE PER DAY ( (GRADUAL INCREASE)
     Route: 065
  19. LAMOTRIGINE [Concomitant]
     Active Substance: LAMOTRIGINE
     Dosage: 150 MG, ONCE PER DAY
     Route: 065

REACTIONS (9)
  - Fluid retention [Recovered/Resolved]
  - Pre-eclampsia [Recovering/Resolving]
  - Proteinuria [Recovering/Resolving]
  - Hypertension [Recovering/Resolving]
  - Pleural effusion [Unknown]
  - Weight increased [Recovered/Resolved]
  - Drug interaction [Recovering/Resolving]
  - N-terminal prohormone brain natriuretic peptide increased [Recovering/Resolving]
  - Hypoalbuminaemia [Recovering/Resolving]
